FAERS Safety Report 10098347 (Version 1)
Quarter: 2014Q2

REPORT INFORMATION
  Report Type: Spontaneous
  Country: GB (occurrence: None)
  Receive Date: 20140421
  Receipt Date: 20140421
  Transmission Date: 20141212
  Serious: Yes (Death, Disabling)
  Sender: FDA-Public Use
  Company Number: 2295794

PATIENT
  Age: 73 Year
  Sex: Male
  Weight: 108 kg

DRUGS (8)
  1. CALCIUM FOLINATE [Suspect]
     Indication: COLORECTAL CANCER METASTATIC
     Dosage: 1 DAY
     Route: 042
     Dates: start: 20130626, end: 20130626
  2. CALCIUM FOLINATE [Suspect]
     Indication: COLORECTAL CANCER METASTATIC
     Dosage: 1 DAY
     Route: 042
     Dates: start: 20130626, end: 20130626
  3. IRINOTECAN HYDROCHLORIDE [Suspect]
     Indication: COLORECTAL CANCER METASTATIC
     Dosage: 1 DAY
     Route: 042
     Dates: start: 20130626, end: 20130626
  4. IRINOTECAN HYDROCHLORIDE [Suspect]
     Indication: COLORECTAL CANCER METASTATIC
     Dosage: 1 DAY
     Route: 042
     Dates: start: 20130626, end: 20130626
  5. FLUOROURACIL [Suspect]
     Indication: COLORECTAL CANCER METASTATIC
     Dosage: DOSAGE:  400MG FOLLOWED BY 2400MG
     Dates: start: 20130626, end: 20130626
  6. FLUOROURACIL [Suspect]
     Indication: COLORECTAL CANCER METASTATIC
     Dosage: DOSAGE:  400MG FOLLOWED BY 2400MG
     Dates: start: 20130626, end: 20130626
  7. AFLIBERCEPT [Suspect]
     Indication: COLORECTAL CANCER METASTATIC
     Dosage: 1 DAY
     Route: 042
     Dates: start: 20130626, end: 20130626
  8. AFLIBERCEPT [Suspect]
     Indication: COLORECTAL CANCER METASTATIC
     Dosage: 1 DAY
     Route: 042
     Dates: start: 20130626, end: 20130626

REACTIONS (6)
  - Neoplasm progression [None]
  - Abdominal pain upper [None]
  - Diarrhoea [None]
  - Fatigue [None]
  - Weight decreased [None]
  - Blood pressure increased [None]
